FAERS Safety Report 7767781-0 (Version None)
Quarter: 2011Q3

REPORT INFORMATION
  Report Type: 
  Country: None (occurrence: None)
  Receive Date: 20110922
  Receipt Date: 20100907
  Transmission Date: 20111222
  Serious: No
  Sender: FDA-Public Use
  Company Number: US-ASTRAZENECA-2010SE18927

PATIENT
  Age: 23194 Day
  Sex: Female
  Weight: 72.6 kg

DRUGS (3)
  1. ZOLOFT [Concomitant]
     Indication: DEPRESSION
  2. SEROQUEL XR [Suspect]
     Indication: DEPRESSION
     Route: 048
     Dates: start: 20100422, end: 20100429
  3. SYNTHROID [Concomitant]
     Indication: HYPOTHYROIDISM

REACTIONS (3)
  - FATIGUE [None]
  - LETHARGY [None]
  - DIZZINESS [None]
